FAERS Safety Report 17798610 (Version 1)
Quarter: 2020Q2

REPORT INFORMATION
  Report Type: Spontaneous
  Country: US (occurrence: US)
  Receive Date: 20200518
  Receipt Date: 20200518
  Transmission Date: 20200714
  Serious: Yes (Disabling)
  Sender: FDA-Public Use
  Company Number: None

PATIENT
  Age: 54 Year
  Sex: Female
  Weight: 67.05 kg

DRUGS (9)
  1. DIABETIC TRUE METRIX TEST STRIPS AND MACHINE [Concomitant]
  2. HYDROCH;OROTHIAZIDE [Concomitant]
  3. GABAPENTIN. [Concomitant]
     Active Substance: GABAPENTIN
  4. GLIPIZIDE. [Concomitant]
     Active Substance: GLIPIZIDE
  5. IBUPROFEN. [Concomitant]
     Active Substance: IBUPROFEN
  6. VARITHENA [Suspect]
     Active Substance: POLIDOCANOL
     Indication: VARICOSE VEIN
  7. ATROVASTATIN CALCIUM [Concomitant]
     Active Substance: ATORVASTATIN CALCIUM
  8. FUROSEMIDE. [Concomitant]
     Active Substance: FUROSEMIDE
  9. GNC WOMEN^S ULTRA MEGA DIABETIC SUPPORT [Concomitant]

REACTIONS (10)
  - Hyperkeratosis [None]
  - Erythema [None]
  - Paraesthesia [None]
  - Pain [None]
  - Hypoaesthesia [None]
  - Swelling [None]
  - Condition aggravated [None]
  - Blister [None]
  - Heart rate irregular [None]
  - Inflammation [None]

NARRATIVE: CASE EVENT DATE: 20200320
